FAERS Safety Report 9088072 (Version 1)
Quarter: 2013Q1

REPORT INFORMATION
  Report Type: Report from Study
  Country: US (occurrence: US)
  Receive Date: 20130130
  Receipt Date: 20130130
  Transmission Date: 20140127
  Serious: No
  Sender: FDA-Public Use
  Company Number: US-ABBOTT-12P-163-0979915-00

PATIENT
  Sex: Female

DRUGS (2)
  1. HUMIRA [Suspect]
     Indication: RHEUMATOID ARTHRITIS
     Dates: start: 201103, end: 20120907
  2. HUMIRA [Suspect]
     Dates: start: 201009, end: 201103

REACTIONS (3)
  - Rheumatoid arthritis [Unknown]
  - Rheumatoid arthritis [Unknown]
  - Drug ineffective [Unknown]
